FAERS Safety Report 14300046 (Version 1)
Quarter: 2017Q4

REPORT INFORMATION
  Report Type: Spontaneous
  Country: PL (occurrence: PL)
  Receive Date: 20171219
  Receipt Date: 20171219
  Transmission Date: 20180321
  Serious: Yes (Other)
  Sender: FDA-Public Use
  Company Number: PL-B.I. PHARMACEUTICALS,INC./RIDGEFIELD-2017-BI-066240

PATIENT
  Age: 63 Year
  Sex: Male

DRUGS (1)
  1. PRAXBIND [Suspect]
     Active Substance: IDARUCIZUMAB
     Indication: PRODUCT USED FOR UNKNOWN INDICATION
     Dosage: DOSE: 5 G OF INTRAVENOUS IDARUCIZUMAB IN TWO 50-ML BOLUS INFUSIONS (EACH CONTAINING 2.5 G OF IDARUCI
     Route: 042

REACTIONS (2)
  - Post procedural haemorrhage [Unknown]
  - Post procedural pneumonia [Unknown]
